FAERS Safety Report 8435127-0 (Version None)
Quarter: 2012Q2

REPORT INFORMATION
  Report Type: 
  Country: None (occurrence: None)
  Receive Date: 20120614
  Receipt Date: 20120611
  Transmission Date: 20120825
  Serious: Yes (Other)
  Sender: FDA-Public Use
  Company Number: PHEH2012US011747

PATIENT
  Sex: Female

DRUGS (2)
  1. NEORAL [Suspect]
     Indication: COMPLICATIONS OF TRANSPLANTED KIDNEY
     Dosage: 1000 MG, BID
     Route: 048
     Dates: start: 20120430
  2. MYFORTIC [Concomitant]
     Dosage: 720 MG, BID

REACTIONS (2)
  - FALL [None]
  - INJURY [None]
